FAERS Safety Report 12583173 (Version 2)
Quarter: 2016Q3

REPORT INFORMATION
  Report Type: Spontaneous
  Country: US (occurrence: US)
  Receive Date: 20160722
  Receipt Date: 20160822
  Transmission Date: 20161109
  Serious: No
  Sender: FDA-Public Use
  Company Number: US-GLAXOSMITHKLINE-US2016GSK100303

PATIENT
  Sex: Female

DRUGS (6)
  1. IMITREX [Suspect]
     Active Substance: SUMATRIPTAN SUCCINATE
     Dosage: UNK UNK, PRN
     Dates: start: 20110308, end: 20130306
  2. IMITREX [Suspect]
     Active Substance: SUMATRIPTAN SUCCINATE
     Indication: RADICULOPATHY
  3. LIMBREL [Concomitant]
     Active Substance: FLAVOCOXID
     Dosage: UNK
     Dates: start: 20110308
  4. IMITREX [Suspect]
     Active Substance: SUMATRIPTAN SUCCINATE
     Indication: POST LAMINECTOMY SYNDROME
  5. IMITREX [Suspect]
     Active Substance: SUMATRIPTAN SUCCINATE
     Indication: HEADACHE
     Dosage: 100 MG, PRN
     Dates: start: 20110308, end: 20130306
  6. IMITREX [Suspect]
     Active Substance: SUMATRIPTAN SUCCINATE
     Indication: NEURITIS

REACTIONS (2)
  - Palpitations [Recovered/Resolved]
  - Drug hypersensitivity [Recovered/Resolved]
